FAERS Safety Report 16733052 (Version 1)
Quarter: 2019Q3

REPORT INFORMATION
  Report Type: Report from Study
  Country: FR (occurrence: FR)
  Receive Date: 20190823
  Receipt Date: 20190823
  Transmission Date: 20191005
  Serious: Yes (Hospitalization)
  Sender: FDA-Public Use
  Company Number: FR-EMD SERONO-9111785

PATIENT
  Sex: Female

DRUGS (1)
  1. OVITRELLE [Suspect]
     Active Substance: CHORIOGONADOTROPIN ALFA
     Indication: OVULATION INDUCTION

REACTIONS (7)
  - Pain [Unknown]
  - Renal disorder [Unknown]
  - Feeding disorder [Unknown]
  - Pleural effusion [Unknown]
  - Ovarian hyperstimulation syndrome [Unknown]
  - Gait disturbance [Unknown]
  - Human chorionic gonadotropin abnormal [Unknown]
